FAERS Safety Report 9450059 (Version 1)
Quarter: 2013Q3

REPORT INFORMATION
  Report Type: Spontaneous
  Country: GB (occurrence: GB)
  Receive Date: 20130809
  Receipt Date: 20130809
  Transmission Date: 20140515
  Serious: Yes (Other)
  Sender: FDA-Public Use
  Company Number: GB-JNJFOC-20130802857

PATIENT
  Age: 56 Year
  Sex: Male
  Weight: 116 kg

DRUGS (6)
  1. XARELTO [Suspect]
     Indication: CEREBROVASCULAR ACCIDENT PROPHYLAXIS
     Route: 048
     Dates: start: 20130502, end: 20130523
  2. XARELTO [Suspect]
     Indication: ATRIAL FIBRILLATION
     Route: 048
     Dates: start: 20130502, end: 20130523
  3. SIMVASTATIN [Concomitant]
     Route: 065
  4. SLOZEM [Concomitant]
     Route: 065
  5. OMEPRAZOLE [Concomitant]
     Route: 065
  6. SERETIDE [Concomitant]
     Route: 065

REACTIONS (2)
  - Petechiae [Not Recovered/Not Resolved]
  - Purpura [Not Recovered/Not Resolved]
